FAERS Safety Report 6476711-3 (Version None)
Quarter: 2009Q4

REPORT INFORMATION
  Report Type: 
  Country: None (occurrence: None)
  Receive Date: 20091207
  Receipt Date: 20091126
  Transmission Date: 20100525
  Serious: Yes (Hospitalization)
  Sender: FDA-Public Use
  Company Number: FR-ROCHE-671586

PATIENT
  Sex: Male

DRUGS (2)
  1. TAMIFLU [Suspect]
     Indication: DRUG USE FOR UNKNOWN INDICATION
     Route: 048
     Dates: start: 20090921, end: 20090925
  2. MUPHORAN [Concomitant]
     Dosage: FIRST CYCLE OF CHEMOTHERAPY (SECOND LINE OF TREATMENT)
     Dates: start: 20090506

REACTIONS (2)
  - CHOLESTASIS [None]
  - CONDITION AGGRAVATED [None]
